FAERS Safety Report 24422269 (Version 1)
Quarter: 2024Q4

REPORT INFORMATION
  Report Type: Spontaneous
  Country: FR (occurrence: FR)
  Receive Date: 20241010
  Receipt Date: 20241010
  Transmission Date: 20250115
  Serious: Yes (Life-Threatening, Hospitalization, Other)
  Sender: BAXTER
  Company Number: None

PATIENT
  Age: 18 Year
  Sex: Female
  Weight: 45 kg

DRUGS (12)
  1. DOXORUBICIN HYDROCHLORIDE [Suspect]
     Active Substance: DOXORUBICIN HYDROCHLORIDE
     Indication: Hodgkin^s disease stage III
     Dosage: 52 MG, 1 CYCLICAL, TOTAL DOSE =403 MG
     Route: 042
     Dates: start: 20230505, end: 20240216
  2. CYCLOPHOSPHAMIDE [Suspect]
     Active Substance: CYCLOPHOSPHAMIDE
     Indication: Hodgkin^s disease stage III
     Dosage: 1800 MG, 1 CYCLICAL, TOTAL DOSE 11060 MG
     Route: 042
     Dates: start: 20230505, end: 20230828
  3. KEYTRUDA [Suspect]
     Active Substance: PEMBROLIZUMAB
     Indication: Hodgkin^s disease stage III
     Dosage: 200 MG, 1 CYCLICAL, TOTAL DOSE=800 MG, (MAMMAL/HAMSTER/CHO CELLS)
     Route: 042
     Dates: start: 20240119, end: 20240402
  4. VINCRISTINE SULFATE [Suspect]
     Active Substance: VINCRISTINE SULFATE
     Indication: Hodgkin^s disease stage III
     Dosage: 1.3 MG, 1 CYCLICAL, TOTAL DOSE=9.32 MG
     Route: 042
     Dates: start: 20230512, end: 20230904
  5. BLEOMYCIN SULFATE [Suspect]
     Active Substance: BLEOMYCIN SULFATE
     Indication: Hodgkin^s disease stage III
     Dosage: UNK, TOTAL DOSE=57.9 MG
     Route: 042
     Dates: start: 20230512, end: 20230719
  6. NAVELBINE [Suspect]
     Active Substance: VINORELBINE TARTRATE
     Indication: Hodgkin^s disease stage III
     Dosage: 31.6 MG, 1 CYCLICAL, TOTAL DOSE =128 MG, (50 MG/5 ML, SOLUTION FOR INJECTION IN VIAL)
     Route: 042
     Dates: start: 20240119, end: 20240216
  7. OXALIPLATIN [Suspect]
     Active Substance: OXALIPLATIN
     Indication: Hodgkin^s disease stage III
     Dosage: 205 MG, 1 CYCLICAL, TOTAL DOSE =620 MG
     Route: 042
     Dates: start: 20240429, end: 20240625
  8. GEMCITABINE [Suspect]
     Active Substance: GEMCITABINE
     Indication: Hodgkin^s disease stage III
     Dosage: 1600 MG, 1 CYCLICAL, TOTAL DOSE =6358 MG
     Route: 042
     Dates: start: 20240119, end: 20240216
  9. DEXAMETHASONE SODIUM PHOSPHATE [Suspect]
     Active Substance: DEXAMETHASONE SODIUM PHOSPHATE
     Indication: Hodgkin^s disease stage III
     Dosage: 40 MG, 1 CYCLICAL, TOTAL DOSE =480 MG
     Route: 048
     Dates: start: 20240429, end: 20240628
  10. CYTARABINE [Suspect]
     Active Substance: CYTARABINE
     Indication: Hodgkin^s disease stage III
     Dosage: 3200 MG, 1 CYCLICAL, TOTAL DOSE =19100 MG, (STRENGTH 1 G/20 ML)
     Route: 042
     Dates: start: 20240430, end: 20240626
  11. ETOPOPHOS [Suspect]
     Active Substance: ETOPOSIDE PHOSPHATE
     Indication: Hodgkin^s disease stage III
     Dosage: 290 MG, 1 CYCLICAL, TOTAL DOSE =5280 MG, (LYOPHILISATE FOR PARENTERAL USE)
     Route: 042
     Dates: start: 20230505, end: 20230830
  12. ADCETRIS [Suspect]
     Active Substance: BRENTUXIMAB VEDOTIN
     Indication: Hodgkin^s disease stage III
     Dosage: 104.4 MG, 1 CYCLICAL, TOTAL DOSE =310 MG
     Route: 042
     Dates: start: 20240429, end: 20240625

REACTIONS (2)
  - Condition aggravated [Recovered/Resolved]
  - Cardiac failure [Recovered/Resolved]

NARRATIVE: CASE EVENT DATE: 20240229
